FAERS Safety Report 4637528-5 (Version None)
Quarter: 2005Q2

REPORT INFORMATION
  Report Type: 
  Country: None (occurrence: None)
  Receive Date: 20050325
  Receipt Date: 20041129
  Transmission Date: 20051028
  Serious: No
  Sender: FDA-Public Use
  Company Number: USA040463892

PATIENT
  Age: 74 Year
  Sex: Female
  Weight: 53 kg

DRUGS (4)
  1. FORTEO [Suspect]
     Indication: OSTEOPOROSIS
     Dosage: 20 UG DAY
     Dates: start: 20040331
  2. CALCIUM GLUCONATE [Concomitant]
  3. VITAMIN D [Concomitant]
  4. TRIAMTERENE [Concomitant]

REACTIONS (12)
  - ADVERSE DRUG REACTION [None]
  - ASTHENIA [None]
  - DIFFICULTY IN WALKING [None]
  - FATIGUE [None]
  - FEELING ABNORMAL [None]
  - HYPERSOMNIA [None]
  - INJECTION SITE ERYTHEMA [None]
  - INJECTION SITE HAEMORRHAGE [None]
  - PAIN [None]
  - SLUGGISHNESS [None]
  - SWELLING FACE [None]
  - TREMOR [None]
